FAERS Safety Report 7379140-3 (Version None)
Quarter: 2011Q1

REPORT INFORMATION
  Report Type: 
  Country: None (occurrence: None)
  Receive Date: 20110328
  Receipt Date: 20110314
  Transmission Date: 20110831
  Serious: Yes (Hospitalization)
  Sender: FDA-Public Use
  Company Number: PHHY2011FR22476

PATIENT
  Sex: Female

DRUGS (4)
  1. NEORAL [Suspect]
     Indication: ANGIOEDEMA
     Dosage: UNK
     Dates: end: 20110201
  2. FUROSEMIDE [Concomitant]
  3. SINGULAIR [Concomitant]
  4. PLAQUENIL [Concomitant]

REACTIONS (3)
  - HEPATOTOXICITY [None]
  - URTICARIA [None]
  - SKIN DISORDER [None]
